FAERS Safety Report 11778865 (Version 3)
Quarter: 2016Q1

REPORT INFORMATION
  Report Type: Spontaneous
  Country: JP (occurrence: JP)
  Receive Date: 20151125
  Receipt Date: 20160127
  Transmission Date: 20160525
  Serious: Yes (Hospitalization)
  Sender: FDA-Public Use
  Company Number: JP-GILEAD-2015-0182510

PATIENT
  Age: 60 Year
  Sex: Female
  Weight: 65.5 kg

DRUGS (8)
  1. SOVALDI [Suspect]
     Active Substance: SOFOSBUVIR
     Indication: HEPATITIS C
     Dosage: 400 MG, UNK
     Route: 048
     Dates: start: 20151105, end: 20151112
  2. AMINOVACT [Concomitant]
     Dosage: 3 DF, UNK
     Route: 048
     Dates: end: 20151112
  3. BROTIZOLAN [Concomitant]
     Dosage: 1 DF, UNK
     Route: 048
     Dates: end: 20151112
  4. REBETOL [Concomitant]
     Active Substance: RIBAVIRIN
     Dosage: 3 DF, UNK
     Route: 048
     Dates: start: 20151105, end: 20151112
  5. GASTER [Concomitant]
     Active Substance: FAMOTIDINE
     Dosage: 2 DF, UNK
     Route: 048
     Dates: end: 20151112
  6. LOXONIN [Concomitant]
     Active Substance: LOXOPROFEN SODIUM
     Dosage: 3 DF, UNK
     Route: 048
     Dates: end: 20151112
  7. MUCOSTA [Concomitant]
     Active Substance: REBAMIPIDE
     Dosage: 3 DF, UNK
     Route: 048
     Dates: end: 20151112
  8. ALINAMIN F                         /00257801/ [Concomitant]
     Dosage: 3 DF, UNK
     Route: 048
     Dates: end: 20151112

REACTIONS (3)
  - Hypokalaemia [Recovered/Resolved]
  - Hypertension [Recovered/Resolved]
  - Tachycardia [Recovered/Resolved]

NARRATIVE: CASE EVENT DATE: 20151112
